FAERS Safety Report 9509988 (Version 1)
Quarter: 2013Q3

REPORT INFORMATION
  Report Type: Spontaneous
  Country: US (occurrence: US)
  Receive Date: 20130909
  Receipt Date: 20130909
  Transmission Date: 20140515
  Serious: Yes (Other)
  Sender: FDA-Public Use
  Company Number: US-BRISTOL-MYERS SQUIBB COMPANY-18879981

PATIENT
  Age: 22 Year
  Sex: Male
  Weight: 94.33 kg

DRUGS (2)
  1. ABILIFY [Suspect]
     Indication: BIPOLAR DISORDER
  2. STRATTERA [Concomitant]
     Indication: BIPOLAR DISORDER

REACTIONS (1)
  - Convulsion [Recovered/Resolved]
